FAERS Safety Report 8528413-7 (Version None)
Quarter: 2012Q3

REPORT INFORMATION
  Report Type: 
  Country: None (occurrence: None)
  Receive Date: 20120722
  Receipt Date: 20120716
  Transmission Date: 20120928
  Serious: Yes (Hospitalization)
  Sender: FDA-Public Use
  Company Number: PHHY2012FR061223

PATIENT
  Age: 42 Year
  Sex: Male

DRUGS (9)
  1. PREDNISONE [Concomitant]
     Indication: IMMUNOSUPPRESSION
     Dosage: 5 MG, UNK
  2. CEFTRIAXONE [Concomitant]
     Dosage: 1 G, UNK
     Route: 042
  3. PIPERACILLIN/TAZOBACTAM [Concomitant]
     Dosage: 4 G, BID
  4. PIPERACILLIN/TAZOBACTAM [Concomitant]
     Dosage: 4 MG, BID
  5. CIPROFLOXACIN [Concomitant]
     Dosage: 500 MG, UNK
     Route: 048
  6. GENTAMICIN [Concomitant]
  7. VANCOMYCIN [Suspect]
     Indication: ANTIBIOTIC THERAPY
  8. CYCLOSPORINE [Concomitant]
     Indication: IMMUNOSUPPRESSION
     Dosage: 45 MG, BID
  9. PIPERACILLIN/TAZOBACTAM [Concomitant]
     Dosage: 4 MG, BID

REACTIONS (7)
  - SYSTEMIC INFLAMMATORY RESPONSE SYNDROME [None]
  - HENOCH-SCHONLEIN PURPURA [None]
  - HAEMATURIA [None]
  - ARTHRITIS [None]
  - PURPURA [None]
  - RASH [None]
  - ARTHRALGIA [None]
